FAERS Safety Report 6530391-7 (Version None)
Quarter: 2009Q4

REPORT INFORMATION
  Report Type: 
  Country: None (occurrence: None)
  Receive Date: 20091231
  Receipt Date: 20091221
  Transmission Date: 20100525
  Serious: Yes (Hospitalization)
  Sender: FDA-Public Use
  Company Number: RENA-1000578

PATIENT
  Age: 30 Year
  Sex: Female

DRUGS (7)
  1. RENAGEL [Suspect]
     Indication: HYPERPHOSPHATAEMIA
     Dosage: ORAL
     Route: 048
     Dates: start: 20041201
  2. INSULIN (INSULIN) [Concomitant]
  3. SYNTHROID [Concomitant]
  4. NEPHRO-VITE (VITAMINS NOS) [Concomitant]
  5. ASPIRIN [Concomitant]
  6. REGLAN [Concomitant]
  7. PROTONIX [Concomitant]

REACTIONS (3)
  - HYPOKALAEMIA [None]
  - IMPAIRED GASTRIC EMPTYING [None]
  - VOMITING [None]
